FAERS Safety Report 9316484 (Version 1)
Quarter: 2013Q2

REPORT INFORMATION
  Report Type: Spontaneous
  Country: US (occurrence: None)
  Receive Date: 20130524
  Receipt Date: 20130524
  Transmission Date: 20140414
  Serious: No
  Sender: FDA-Public Use
  Company Number: US-ALSI-201300113

PATIENT
  Age: 16 Year
  Sex: Male

DRUGS (4)
  1. OXYGEN [Suspect]
     Indication: HYPOXIA
     Dosage: 4 ONCE A MINUTE RESPIRATORY?8 ONCE A MINUTE RESPIRATORY
  2. NITROUS OXIDE [Concomitant]
  3. PROPOFOL [Concomitant]
  4. FENTANYL [Concomitant]

REACTIONS (5)
  - Pneumomediastinum [None]
  - Subcutaneous emphysema [None]
  - Laryngospasm [None]
  - Lobar pneumonia [None]
  - Respiratory distress [None]
